FAERS Safety Report 5585747-6 (Version None)
Quarter: 2008Q1

REPORT INFORMATION
  Report Type: 
  Country: None (occurrence: None)
  Receive Date: 20080109
  Receipt Date: 20071206
  Transmission Date: 20080703
  Serious: Yes (Life-Threatening, Hospitalization)
  Sender: FDA-Public Use
  Company Number: PL-ROCHE-515508

PATIENT
  Age: 53 Year
  Sex: Male

DRUGS (6)
  1. MYCOPHENOLATE MOFETIL [Suspect]
     Indication: RENAL TRANSPLANT
     Route: 048
     Dates: start: 20070518
  2. BLINDED BELATACEPT [Suspect]
     Indication: RENAL TRANSPLANT
     Route: 042
     Dates: start: 20070608
  3. PREDNISONE TAB [Suspect]
     Indication: DRUG USE FOR UNKNOWN INDICATION
     Route: 048
     Dates: start: 20070601
  4. CLONIDINE [Concomitant]
     Dates: start: 20070412, end: 20070909
  5. DOXAZOSIN MESYLATE [Concomitant]
     Dates: start: 20070425, end: 20070909
  6. OMEPRAZOLE [Concomitant]
     Dates: start: 20070411

REACTIONS (2)
  - PLATELET COUNT DECREASED [None]
  - SEPSIS [None]
